FAERS Safety Report 8798161 (Version 1)
Quarter: 2012Q4

REPORT INFORMATION
  Report Type: 
  Country: BR (occurrence: BR)
  Receive Date: 20120920
  Receipt Date: 20120920
  Transmission Date: 20130627
  Serious: Yes (Other)
  Sender: FDA-Public Use
  Company Number: BR-AMGEN-BRASP2012058209

PATIENT
  Age: 65 Year
  Sex: Female
  Weight: 64 kg

DRUGS (5)
  1. DIAMICRON [Concomitant]
     Indication: DIABETES MELLITUS
     Dosage: UNK
  2. OSCAL                              /00514701/ [Concomitant]
     Indication: OSTEOARTHRITIS
     Dosage: UNK
  3. METHOTREXATE [Concomitant]
     Dosage: UNK UNK, UNK
  4. PRELONE                            /00016201/ [Concomitant]
     Dosage: UNK
  5. ENBREL [Suspect]
     Indication: RHEUMATOID ARTHRITIS
     Dosage: 50 mg, 1x/week
     Route: 058
     Dates: end: 20120406

REACTIONS (2)
  - Wound [Not Recovered/Not Resolved]
  - Joint injury [Unknown]
